FAERS Safety Report 23262132 (Version 3)
Quarter: 2024Q2

REPORT INFORMATION
  Report Type: Other
  Country: US (occurrence: None)
  Receive Date: 20231205
  Receipt Date: 20240425
  Transmission Date: 20240716
  Serious: Yes (Hospitalization)
  Sender: FDA-Public Use
  Company Number: US-ROCHE-3467083

PATIENT
  Age: 36 Year
  Sex: Male

DRUGS (6)
  1. UNSPECIFIED INGREDIENT [Suspect]
     Active Substance: UNSPECIFIED INGREDIENT
     Indication: Product used for unknown indication
     Route: 065
  2. GABAPENTIN [Concomitant]
     Active Substance: GABAPENTIN
     Dates: start: 20210405
  3. TYSABRI [Concomitant]
     Active Substance: NATALIZUMAB
     Dosage: MS DISEASE
     Dates: start: 20210721
  4. XALATAN [Concomitant]
     Active Substance: LATANOPROST
     Dates: start: 20180918
  5. ACETAMINOPHEN [Concomitant]
     Active Substance: ACETAMINOPHEN
     Dates: start: 20210804
  6. CODEINE [Concomitant]
     Active Substance: CODEINE
     Dates: start: 20210804

REACTIONS (1)
  - COVID-19 [Recovered/Resolved]

NARRATIVE: CASE EVENT DATE: 20231120
